FAERS Safety Report 11923620 (Version 1)
Quarter: 2016Q1

REPORT INFORMATION
  Report Type: Spontaneous
  Country: US (occurrence: US)
  Receive Date: 20160118
  Receipt Date: 20160118
  Transmission Date: 20160526
  Serious: Yes (Hospitalization)
  Sender: FDA-Public Use
  Company Number: US-BAYER-2016-005830

PATIENT
  Age: 83 Year
  Sex: Male

DRUGS (2)
  1. MIRALAX [Suspect]
     Active Substance: POLYETHYLENE GLYCOL 3350
     Indication: CONSTIPATION
  2. ENZALUTAMIDE [Suspect]
     Active Substance: ENZALUTAMIDE
     Indication: PROSTATE CANCER
     Dosage: 160 MG, QD
     Route: 048
     Dates: start: 20141118

REACTIONS (6)
  - Decreased appetite [None]
  - Asthenia [None]
  - Gingival disorder [None]
  - Gastric disorder [None]
  - Poor dental condition [None]
  - Headache [None]

NARRATIVE: CASE EVENT DATE: 201502
